FAERS Safety Report 4777830-X (Version None)
Quarter: 2005Q3

REPORT INFORMATION
  Report Type: 
  Country: None (occurrence: None)
  Receive Date: 20050915
  Receipt Date: 20050831
  Transmission Date: 20060218
  Serious: Yes (Death, Life-Threatening, Hospitalization)
  Sender: FDA-Public Use
  Company Number: JP_030801524

PATIENT
  Age: 45 Year
  Sex: Male
  Weight: 63 kg

DRUGS (7)
  1. GEMZAR [Suspect]
     Indication: PANCREATIC CARCINOMA
     Dosage: 1776 MG OTHER
     Route: 050
     Dates: start: 20030722, end: 20030729
  2. CISPLATIN [Concomitant]
  3. URSOSAN (URSODEOXYCHOLIC ACID) [Concomitant]
  4. SULPERAZON [Concomitant]
  5. NOVAMIN (PROCHLORPERAZINE) [Concomitant]
  6. GRANISETRON [Concomitant]
  7. DEXAMETHASONE [Concomitant]

REACTIONS (14)
  - ANOREXIA [None]
  - CONDITION AGGRAVATED [None]
  - DRUG TOXICITY [None]
  - FATIGUE [None]
  - FEBRILE NEUTROPENIA [None]
  - HEPATIC FAILURE [None]
  - METASTASES TO LIVER [None]
  - PANCYTOPENIA [None]
  - PHARYNGOLARYNGEAL PAIN [None]
  - PRURITUS [None]
  - PURPURA [None]
  - PYREXIA [None]
  - RASH [None]
  - STOMATITIS [None]
